FAERS Safety Report 16751501 (Version 2)
Quarter: 2019Q4

REPORT INFORMATION
  Report Type: Spontaneous
  Country: US (occurrence: US)
  Receive Date: 20190828
  Receipt Date: 20191014
  Transmission Date: 20200122
  Serious: Yes (Other)
  Sender: FDA-Public Use
  Company Number: US-JNJFOC-20190832107

PATIENT
  Age: 44 Year
  Sex: Male

DRUGS (5)
  1. INVEGA [Suspect]
     Active Substance: PALIPERIDONE
     Indication: BIPOLAR DISORDER
     Dosage: 4 MG PER ORAL QD
     Route: 048
     Dates: start: 201905, end: 201907
  2. LITHIUM. [Concomitant]
     Active Substance: LITHIUM
     Indication: BIPOLAR DISORDER
     Dosage: SINCE YEARS?LITHIUM ER
     Route: 065
  3. LISINOPRIL. [Concomitant]
     Active Substance: LISINOPRIL
     Indication: HYPERTENSION
     Dosage: SINCE YEARS
     Route: 065
  4. INVEGA SUSTENNA [Suspect]
     Active Substance: PALIPERIDONE PALMITATE
     Indication: BIPOLAR DISORDER
     Route: 030
     Dates: start: 201811, end: 201908
  5. NORVASC [Concomitant]
     Active Substance: AMLODIPINE BESYLATE
     Indication: HYPERTENSION
     Route: 065
     Dates: start: 2019

REACTIONS (6)
  - Gynaecomastia [Not Recovered/Not Resolved]
  - Weight increased [Unknown]
  - Product use in unapproved indication [Unknown]
  - Off label use [Unknown]
  - Treatment noncompliance [Unknown]
  - Blood prolactin increased [Unknown]

NARRATIVE: CASE EVENT DATE: 201811
